FAERS Safety Report 11632195 (Version 2)
Quarter: 2015Q4

REPORT INFORMATION
  Report Type: Spontaneous
  Country: BR (occurrence: BR)
  Receive Date: 20151015
  Receipt Date: 20151022
  Transmission Date: 20160304
  Serious: Yes (Hospitalization)
  Sender: FDA-Public Use
  Company Number: BR-SA-2015SA159259

PATIENT
  Age: 48 Year
  Sex: Female

DRUGS (1)
  1. FABRAZYME [Suspect]
     Active Substance: AGALSIDASE BETA
     Indication: FABRY^S DISEASE
     Dosage: DOSE: 2 VIALS
     Route: 041
     Dates: start: 20121212

REACTIONS (1)
  - Vein disorder [Recovered/Resolved]
